FAERS Safety Report 12378335 (Version 3)
Quarter: 2016Q3

REPORT INFORMATION
  Report Type: Spontaneous
  Country: US (occurrence: US)
  Receive Date: 20160517
  Receipt Date: 20160721
  Transmission Date: 20161109
  Serious: No
  Sender: FDA-Public Use
  Company Number: US-PFIZER INC-2016248431

PATIENT
  Age: 74 Year
  Sex: Male

DRUGS (1)
  1. IBUPROFEN SODIUM. [Suspect]
     Active Substance: IBUPROFEN SODIUM
     Dosage: UNK

REACTIONS (1)
  - Drug hypersensitivity [Unknown]
